FAERS Safety Report 20196885 (Version 3)
Quarter: 2022Q1

REPORT INFORMATION
  Report Type: Spontaneous
  Country: US (occurrence: US)
  Receive Date: 20211217
  Receipt Date: 20220217
  Transmission Date: 20220423
  Serious: Yes (Hospitalization, Other)
  Sender: FDA-Public Use
  Company Number: US-MLMSERVICE-20211130-3246346-1

PATIENT
  Age: 15 Year
  Sex: Female

DRUGS (3)
  1. FLUOXETINE [Interacting]
     Active Substance: FLUOXETINE HYDROCHLORIDE
     Indication: Major depression
     Dosage: 40 MILLIGRAM, ONCE A DAY
     Route: 065
  2. FLUOXETINE [Interacting]
     Active Substance: FLUOXETINE HYDROCHLORIDE
     Indication: Obsessive-compulsive disorder
     Dosage: 20 MILLIGRAM, ONCE A DAY
     Route: 065
  3. FIASP [Interacting]
     Active Substance: INSULIN ASPART
     Indication: Type 1 diabetes mellitus
     Dosage: UNK(INSULIN PUMP )
     Route: 065

REACTIONS (2)
  - Serum sickness-like reaction [Recovered/Resolved]
  - Drug interaction [Recovered/Resolved]
